FAERS Safety Report 23409881 (Version 1)
Quarter: 2024Q1

REPORT INFORMATION
  Report Type: Other
  Country: None (occurrence: IN)
  Receive Date: 20240117
  Receipt Date: 20240117
  Transmission Date: 20240410
  Serious: Yes (Life-Threatening, Hospitalization, Other)
  Sender: FDA-Public Use
  Company Number: IN-B.Braun Medical Inc.-2151430

PATIENT
  Age: 69 Year
  Sex: Male

DRUGS (10)
  1. MEROPENEM\SODIUM CHLORIDE [Suspect]
     Active Substance: MEROPENEM\SODIUM CHLORIDE
     Indication: Pyrexia
  2. TEICOPLANIN [Suspect]
     Active Substance: TEICOPLANIN
  3. TIGECYCLINE [Suspect]
     Active Substance: TIGECYCLINE
  4. LEVETIRACETAM [Suspect]
     Active Substance: LEVETIRACETAM
  5. METOPROLOL [Concomitant]
     Active Substance: METOPROLOL
  6. METFORMIN [Concomitant]
     Active Substance: METFORMIN HYDROCHLORIDE
  7. IVABRADINE [Concomitant]
     Active Substance: IVABRADINE
  8. PANTOPRAZOLE [Concomitant]
     Active Substance: PANTOPRAZOLE
  9. Salbutamol with ipratropium [Concomitant]
  10. LACTULOSE [Concomitant]
     Active Substance: LACTULOSE

REACTIONS (2)
  - Rhabdomyolysis [None]
  - Blood creatine phosphokinase increased [None]
